FAERS Safety Report 17230017 (Version 1)
Quarter: 2020Q1

REPORT INFORMATION
  Report Type: Other
  Country: US (occurrence: US)
  Receive Date: 20200103
  Receipt Date: 20200103
  Transmission Date: 20200409
  Serious: No
  Sender: FDA-Public Use
  Company Number: US-ORIT LABORATORIES LLC-2078468

PATIENT
  Age: 74 Year
  Sex: Female
  Weight: 56.82 kg

DRUGS (1)
  1. BENZONATATE CAPSULES, USP 100 MG [Suspect]
     Active Substance: BENZONATATE
     Indication: INFLUENZA
     Route: 048
     Dates: start: 20191218, end: 20191222

REACTIONS (6)
  - Cough [Recovered/Resolved]
  - Headache [Recovered/Resolved]
  - Nasal congestion [Recovered/Resolved]
  - Nausea [Recovered/Resolved]
  - Chills [Recovered/Resolved]
  - Dizziness [Recovered/Resolved]

NARRATIVE: CASE EVENT DATE: 20191218
